FAERS Safety Report 5228427-9 (Version None)
Quarter: 2007Q1

REPORT INFORMATION
  Report Type: 
  Country: None (occurrence: None)
  Receive Date: 20070205
  Receipt Date: 20070129
  Transmission Date: 20070707
  Serious: Yes (Life-Threatening, Hospitalization, Other)
  Sender: FDA-Public Use
  Company Number: JP-BRISTOL-MYERS SQUIBB COMPANY-13628102

PATIENT
  Age: 64 Year
  Sex: Male
  Weight: 55 kg

DRUGS (3)
  1. UFT [Suspect]
     Indication: PROSTATE CANCER
     Route: 048
     Dates: start: 20060927, end: 20061221
  2. ENDOXAN [Suspect]
     Indication: PROSTATE CANCER
     Route: 048
     Dates: start: 20051027, end: 20061221
  3. DECADRON [Concomitant]
     Route: 048
     Dates: start: 20050512, end: 20061221

REACTIONS (3)
  - CYSTITIS HAEMORRHAGIC [None]
  - DISSEMINATED INTRAVASCULAR COAGULATION [None]
  - INTERSTITIAL LUNG DISEASE [None]
